FAERS Safety Report 5402456-4 (Version None)
Quarter: 2007Q3

REPORT INFORMATION
  Report Type: 
  Country: None (occurrence: None)
  Receive Date: 20070801
  Receipt Date: 20060808
  Transmission Date: 20080115
  Serious: No
  Sender: FDA-Public Use
  Company Number: A0608078A

PATIENT
  Age: 60 Year
  Sex: Female
  Weight: 56.4 kg

DRUGS (8)
  1. IMITREX [Suspect]
     Indication: MIGRAINE
     Dosage: 100MG AS REQUIRED
     Route: 048
     Dates: start: 20040101
  2. THEOPHYLLINE [Concomitant]
  3. ASMACORT [Concomitant]
  4. ALBUTEROL [Concomitant]
  5. TESSALON [Concomitant]
  6. ROBITUSSIN DM [Concomitant]
  7. DRIXORAL [Concomitant]
  8. PREDNISONE [Concomitant]

REACTIONS (3)
  - CHEST PAIN [None]
  - DRUG INEFFECTIVE [None]
  - PHARMACEUTICAL PRODUCT COMPLAINT [None]
